FAERS Safety Report 8460147-X (Version None)
Quarter: 2012Q2

REPORT INFORMATION
  Report Type: 
  Country: None (occurrence: None)
  Receive Date: 20120323
  Receipt Date: 20111013
  Transmission Date: 20120825
  Serious: Yes (Other)
  Sender: FDA-Public Use
  Company Number: 163-21880-11101640

PATIENT
  Age: 89 Year
  Sex: Female
  Weight: 70.3075 kg

DRUGS (4)
  1. COREG [Concomitant]
  2. LASIX [Concomitant]
  3. SOLU-MEDROL [Concomitant]
  4. REVLIMID [Suspect]
     Indication: MULTIPLE MYELOMA
     Dosage: 5 MG, 1 IN 1 D, PO
     Route: 048
     Dates: start: 20110901

REACTIONS (1)
  - RASH [None]
